FAERS Safety Report 20288738 (Version 1)
Quarter: 2022Q1

REPORT INFORMATION
  Report Type: Spontaneous
  Country: US (occurrence: US)
  Receive Date: 20220104
  Receipt Date: 20220104
  Transmission Date: 20220424
  Serious: No
  Sender: FDA-Public Use
  Company Number: US-APOTEX-2021AP047070

PATIENT
  Age: 72 Year
  Sex: Female

DRUGS (3)
  1. MOXIFLOXACIN [Suspect]
     Active Substance: MOXIFLOXACIN
     Indication: Ocular hyperaemia
     Dosage: 2 GTT DROPS, TID (1 DROP ON EACH EYE LAST FRIDAY NIGHT)
     Route: 047
     Dates: start: 20211217
  2. MOXIFLOXACIN [Suspect]
     Active Substance: MOXIFLOXACIN
     Indication: Eye infection
     Dosage: 3 GTT DROPS (3 DROPS ON EACH EYE)
     Route: 047
     Dates: start: 20211218
  3. MOXIFLOXACIN [Suspect]
     Active Substance: MOXIFLOXACIN
     Indication: Eye irritation
     Dosage: 1 GTT DROPS (1 DROP ON EACH EYE)
     Route: 047
     Dates: start: 20211219

REACTIONS (3)
  - Hypersensitivity [Not Recovered/Not Resolved]
  - Eye pruritus [Not Recovered/Not Resolved]
  - Condition aggravated [Not Recovered/Not Resolved]

NARRATIVE: CASE EVENT DATE: 20211201
